FAERS Safety Report 26000190 (Version 1)
Quarter: 2025Q4

REPORT INFORMATION
  Report Type: Spontaneous
  Country: JP (occurrence: JP)
  Receive Date: 20251105
  Receipt Date: 20251105
  Transmission Date: 20260118
  Serious: Yes (Other)
  Sender: BRISTOL-MYERS SQUIBB COMPANY
  Company Number: JP-ONO-2025JP019149

PATIENT
  Age: 26 Year
  Sex: Female
  Weight: 41.4 kg

DRUGS (15)
  1. OPDIVO [Suspect]
     Active Substance: NIVOLUMAB
     Indication: Squamous cell carcinoma of skin
     Dosage: 480 MG
     Route: 041
     Dates: start: 20250123, end: 20250123
  2. OPDIVO [Suspect]
     Active Substance: NIVOLUMAB
     Dosage: 240 MG
     Route: 041
  3. PREDNISOLONE [Suspect]
     Active Substance: PREDNISOLONE
     Indication: Rash
     Dosage: 30 MG, EVERYDAY, ORAL DRUG UNSPECIFIED FORM
     Dates: start: 20250219, end: 20250310
  4. PREDNISOLONE [Suspect]
     Active Substance: PREDNISOLONE
     Dosage: 20 MG, EVERYDAY, ORAL DRUG UNSPECIFIED FORM
     Dates: start: 20250311, end: 20250317
  5. PREDNISOLONE [Suspect]
     Active Substance: PREDNISOLONE
     Dosage: 15 MG, EVERYDAY, ORAL DRUG UNSPECIFIED FORM
     Dates: start: 20250318, end: 20250319
  6. PREDNISOLONE [Suspect]
     Active Substance: PREDNISOLONE
     Dosage: 10 MG, EVERYDAY, ORAL DRUG UNSPECIFIED FORM
     Dates: start: 20250320, end: 20250324
  7. PREDNISOLONE [Suspect]
     Active Substance: PREDNISOLONE
     Dosage: 5 MG, EVERYDAY, ORAL DRUG UNSPECIFIED FORM
     Dates: start: 20250325
  8. MENOAID [Concomitant]
     Indication: Product used for unknown indication
     Dosage: 1 DF, Q84H (LOWER ABDOMEN, TUESDAY/FRIDAY)
  9. FLUVASTATIN [Concomitant]
     Active Substance: FLUVASTATIN SODIUM
     Indication: Product used for unknown indication
     Dosage: 20 MG, EVERYDAY
  10. ACETAMINOPHEN [Concomitant]
     Active Substance: ACETAMINOPHEN
     Indication: Product used for unknown indication
     Dosage: 400 MG, Q8H (ADJUSTMENT ON AN AS-NEEDED-BASIS)
  11. FLUOROMETHOLONE [Concomitant]
     Active Substance: FLUOROMETHOLONE
     Indication: Product used for unknown indication
     Dosage: UNK, EVERYDAY
     Route: 047
  12. DIQUAFOSOL TETRASODIUM [Concomitant]
     Active Substance: DIQUAFOSOL TETRASODIUM
     Indication: Product used for unknown indication
     Dosage: UNK, EVERYDAY
     Route: 047
  13. REBAMIPIDE [Concomitant]
     Active Substance: REBAMIPIDE
     Indication: Product used for unknown indication
     Dosage: UNK, EVERYDAY
     Route: 047
  14. ACETAMINOPHEN [Concomitant]
     Active Substance: ACETAMINOPHEN
     Indication: Premedication
     Dosage: 600 MG
  15. POLARAMINE [Concomitant]
     Active Substance: DEXCHLORPHENIRAMINE MALEATE
     Indication: Premedication
     Dosage: 5 MG

REACTIONS (16)
  - Cytokine release syndrome [Unknown]
  - Skin exfoliation [Recovering/Resolving]
  - Pustule [Recovering/Resolving]
  - Infusion related reaction [Recovered/Resolved]
  - Haemolysis [Unknown]
  - Rash erythematous [Recovering/Resolving]
  - Oral mucosa erosion [Recovering/Resolving]
  - Skin erosion [Recovering/Resolving]
  - Onychomadesis [Unknown]
  - Dyspnoea [Unknown]
  - Rash pruritic [Unknown]
  - Euphoric mood [Unknown]
  - Insomnia [Unknown]
  - Malaise [Unknown]
  - Decreased appetite [Unknown]
  - Somnolence [Unknown]

NARRATIVE: CASE EVENT DATE: 20250123
